FAERS Safety Report 5146709-6 (Version None)
Quarter: 2006Q4

REPORT INFORMATION
  Report Type: 
  Country: None (occurrence: None)
  Receive Date: 20061107
  Receipt Date: 20061107
  Transmission Date: 20070319
  Serious: Yes (Other)
  Sender: FDA-Public Use
  Company Number: None

PATIENT
  Age: 81 Year
  Sex: Female

DRUGS (14)
  1. REVLIMID [Suspect]
     Indication: MULTIPLE MYELOMA
     Dosage: 10MG DAILY PO
     Route: 048
     Dates: start: 20060808, end: 20060904
  2. BUSPIRONE HCL [Concomitant]
  3. METOPROLOL TARTRATE [Concomitant]
  4. FUROSEMIDE [Concomitant]
  5. LISINOPRIL [Concomitant]
  6. METOCLOPRAMIDE [Concomitant]
  7. LACTULOSE [Concomitant]
  8. LEVOTHROID [Concomitant]
  9. DEXAMETHASONE TAB [Concomitant]
  10. FLUOXETINE [Concomitant]
  11. DIGOXIN [Concomitant]
  12. WARFARIN SODIUM [Concomitant]
  13. LOVASTATIN [Concomitant]
  14. OMEPRAZOLE [Concomitant]

REACTIONS (4)
  - ARTHRALGIA [None]
  - DRUG ADMINISTRATION ERROR [None]
  - FALL [None]
  - MEMORY IMPAIRMENT [None]
